FAERS Safety Report 6020703-5 (Version None)
Quarter: 2008Q4

REPORT INFORMATION
  Report Type: 
  Country: None (occurrence: None)
  Receive Date: 20081223
  Receipt Date: 20081223
  Transmission Date: 20090506
  Serious: Yes (Hospitalization)
  Sender: FDA-Public Use
  Company Number: None

PATIENT
  Sex: Female
  Weight: 50.6 kg

DRUGS (2)
  1. CARBOPLATIN [Suspect]
     Dosage: 438 MG
     Dates: end: 20070801
  2. TAXOTERE [Suspect]
     Dosage: 118 MG
     Dates: end: 20070801

REACTIONS (3)
  - BLOOD SODIUM DECREASED [None]
  - FEBRILE NEUTROPENIA [None]
  - WHITE BLOOD CELL COUNT DECREASED [None]
